FAERS Safety Report 6782051-5 (Version None)
Quarter: 2010Q2

REPORT INFORMATION
  Report Type: 
  Country: None (occurrence: None)
  Receive Date: 20100621
  Receipt Date: 20100610
  Transmission Date: 20101027
  Serious: Yes (Hospitalization, Disabling, Other)
  Sender: FDA-Public Use
  Company Number: B0599144A

PATIENT
  Sex: Female

DRUGS (7)
  1. ALKERAN [Suspect]
     Dosage: 122MG PER DAY
     Route: 042
     Dates: start: 20080707, end: 20080708
  2. FLUDARA [Concomitant]
     Indication: PREMEDICATION
     Dosage: 33MG PER DAY
     Route: 042
     Dates: start: 20080704, end: 20080708
  3. TACROLIMUS [Concomitant]
     Indication: PROPHYLAXIS AGAINST TRANSPLANT REJECTION
  4. MYCOPHENOLATE MOFETIL [Concomitant]
  5. KYTRIL [Concomitant]
     Indication: NAUSEA
     Dosage: 6MG PER DAY
     Route: 042
     Dates: start: 20080704, end: 20080708
  6. UNKNOWN [Concomitant]
     Indication: INFECTION
     Dosage: 4MG PER DAY
     Route: 042
     Dates: start: 20080705, end: 20080710
  7. GLEEVEC [Concomitant]
     Dosage: 600MG PER DAY
     Route: 048
     Dates: start: 20080707, end: 20080714

REACTIONS (15)
  - ABDOMINAL PAIN UPPER [None]
  - BLOOD ALBUMIN DECREASED [None]
  - C-REACTIVE PROTEIN INCREASED [None]
  - COAGULATION TEST ABNORMAL [None]
  - CONDITION AGGRAVATED [None]
  - DISSEMINATED INTRAVASCULAR COAGULATION [None]
  - FIBRIN DEGRADATION PRODUCTS INCREASED [None]
  - HAEMOGLOBIN DECREASED [None]
  - PLATELET COUNT DECREASED [None]
  - PLEURAL EFFUSION [None]
  - PROTEIN TOTAL DECREASED [None]
  - TENDERNESS [None]
  - VENOOCCLUSIVE LIVER DISEASE [None]
  - WEIGHT INCREASED [None]
  - WHITE BLOOD CELL COUNT DECREASED [None]
